FAERS Safety Report 21916105 (Version 1)
Quarter: 2023Q1

REPORT INFORMATION
  Report Type: Spontaneous
  Country: US (occurrence: US)
  Receive Date: 20230126
  Receipt Date: 20230126
  Transmission Date: 20230417
  Serious: Yes (Hospitalization)
  Sender: FDA-Public Use
  Company Number: US-RECORDATI RARE DISEASE INC.-2023000344

PATIENT

DRUGS (3)
  1. CARBAGLU [Suspect]
     Active Substance: CARGLUMIC ACID
     Indication: Hyperglycinaemia
     Dosage: 600 MILLIGRAM, BID
     Route: 048
     Dates: start: 20220930
  2. CARBAGLU [Suspect]
     Active Substance: CARGLUMIC ACID
     Dosage: UNKNOWN DOSE (WHICH IS NOT SAME WITH THE PRESCRIBED DOSE)
     Route: 048
  3. CARBAGLU [Suspect]
     Active Substance: CARGLUMIC ACID
     Dosage: 800 MILLIGRAM, BID
     Route: 048
     Dates: start: 202301

REACTIONS (2)
  - Hyperammonaemia [Unknown]
  - Incorrect dose administered [Recovered/Resolved]
